FAERS Safety Report 16855667 (Version 6)
Quarter: 2020Q4

REPORT INFORMATION
  Report Type: Spontaneous
  Country: US (occurrence: US)
  Receive Date: 20190926
  Receipt Date: 20201222
  Transmission Date: 20210113
  Serious: Yes (Hospitalization, Other)
  Sender: FDA-Public Use
  Company Number: US-GILEAD-2019-0429792

PATIENT
  Age: 40 Year
  Sex: Male
  Weight: 76.55 kg

DRUGS (28)
  1. DIOCAPS [DOCUSATE SODIUM] [Concomitant]
  2. ACETAMINOPHEN AND CODEINE [Concomitant]
     Active Substance: ACETAMINOPHEN\CODEINE PHOSPHATE
  3. FLUCONAZOLE. [Concomitant]
     Active Substance: FLUCONAZOLE
  4. ISENTRESS [Concomitant]
     Active Substance: RALTEGRAVIR POTASSIUM
  5. LEVITRA [Concomitant]
     Active Substance: VARDENAFIL HYDROCHLORIDE
  6. SEVELAMER [Concomitant]
     Active Substance: SEVELAMER
  7. NORVIR [Concomitant]
     Active Substance: RITONAVIR
  8. NIFEDIPINE. [Concomitant]
     Active Substance: NIFEDIPINE
  9. IBUPROFEN. [Concomitant]
     Active Substance: IBUPROFEN
  10. AMOXICILLIN. [Concomitant]
     Active Substance: AMOXICILLIN
  11. EPIVIR [Concomitant]
     Active Substance: LAMIVUDINE
  12. REYATAZ [Concomitant]
     Active Substance: ATAZANAVIR SULFATE
  13. VIREAD [Suspect]
     Active Substance: TENOFOVIR DISOPROXIL FUMARATE
     Indication: HIV INFECTION
     Dosage: UNK
     Route: 048
     Dates: start: 20090820
  14. NEURONTIN [Concomitant]
     Active Substance: GABAPENTIN
  15. RISPERIDONE. [Concomitant]
     Active Substance: RISPERIDONE
  16. TIVICAY [Concomitant]
     Active Substance: DOLUTEGRAVIR SODIUM
  17. ZIAGEN [Concomitant]
     Active Substance: ABACAVIR SULFATE
  18. NIFEDICAL XL [Concomitant]
     Active Substance: NIFEDIPINE
  19. METHOCARBAMOL. [Concomitant]
     Active Substance: METHOCARBAMOL
  20. CLONIDINE. [Concomitant]
     Active Substance: CLONIDINE
  21. CLINDAMYCIN. [Concomitant]
     Active Substance: CLINDAMYCIN
  22. PENICILLINE VK [Concomitant]
  23. HYDRALAZINE [Concomitant]
     Active Substance: HYDRALAZINE HYDROCHLORIDE
  24. HCTZ [Concomitant]
     Active Substance: HYDROCHLOROTHIAZIDE
  25. DIPHENHYDRAMINE. [Concomitant]
     Active Substance: DIPHENHYDRAMINE
  26. CALCITROL [CALCITRIOL] [Concomitant]
     Active Substance: CALCITRIOL
  27. RETROVIR [Concomitant]
     Active Substance: ZIDOVUDINE
  28. ENALAPRIL MALEATE. [Concomitant]
     Active Substance: ENALAPRIL MALEATE

REACTIONS (12)
  - Azotaemia [Unknown]
  - Fear-related avoidance of activities [Not Recovered/Not Resolved]
  - Economic problem [Not Recovered/Not Resolved]
  - Anhedonia [Not Recovered/Not Resolved]
  - Renal failure [Not Recovered/Not Resolved]
  - Anxiety [Not Recovered/Not Resolved]
  - Quality of life decreased [Not Recovered/Not Resolved]
  - Depression [Not Recovered/Not Resolved]
  - Pain [Not Recovered/Not Resolved]
  - Emotional distress [Not Recovered/Not Resolved]
  - Chronic kidney disease [Not Recovered/Not Resolved]
  - Loss of personal independence in daily activities [Not Recovered/Not Resolved]

NARRATIVE: CASE EVENT DATE: 20120410
